FAERS Safety Report 6221133-3 (Version None)
Quarter: 2009Q2

REPORT INFORMATION
  Report Type: 
  Country: None (occurrence: None)
  Receive Date: 20090608
  Receipt Date: 20090522
  Transmission Date: 20091009
  Serious: Yes (Hospitalization)
  Sender: FDA-Public Use
  Company Number: 1-18678795

PATIENT
  Sex: Female

DRUGS (3)
  1. WARFARIN SODIUM [Suspect]
     Indication: CARDIAC PACEMAKER INSERTION
  2. DIGOXIN [Suspect]
     Indication: CARDIAC FAILURE
  3. FUROSEMIDE [Suspect]
     Indication: FLUID RETENTION
     Dosage: UNK UNK INTRAVENOUS
     Route: 042

REACTIONS (3)
  - BLOOD PRESSURE DECREASED [None]
  - LOSS OF CONSCIOUSNESS [None]
  - PERICARDIAL EFFUSION [None]
